FAERS Safety Report 14904301 (Version 1)
Quarter: 2018Q2

REPORT INFORMATION
  Report Type: Spontaneous
  Country: PT (occurrence: PT)
  Receive Date: 20180516
  Receipt Date: 20180516
  Transmission Date: 20180711
  Serious: Yes (Other)
  Sender: FDA-Public Use
  Company Number: PT-009507513-1805PRT003344

PATIENT
  Age: 59 Year
  Sex: Female
  Weight: 63 kg

DRUGS (1)
  1. DIPROFOS DEPOT [Suspect]
     Active Substance: BETAMETHASONE DIPROPIONATE\BETAMETHASONE SODIUM PHOSPHATE
     Indication: ARTHRALGIA
     Dosage: 14 MG IN TOTAL, ONCE
     Route: 030
     Dates: start: 20180215, end: 20180215

REACTIONS (4)
  - Headache [Recovered/Resolved]
  - Head discomfort [Recovered/Resolved]
  - Nausea [Recovered/Resolved]
  - Rash [Recovering/Resolving]

NARRATIVE: CASE EVENT DATE: 20180413
